FAERS Safety Report 7403856-3 (Version None)
Quarter: 2011Q2

REPORT INFORMATION
  Report Type: 
  Country: None (occurrence: None)
  Receive Date: 20110401
  Receipt Date: 20110318
  Transmission Date: 20111010
  Serious: Yes (Hospitalization)
  Sender: FDA-Public Use
  Company Number: 029962

PATIENT
  Sex: Male

DRUGS (5)
  1. KETOPROFEN [Concomitant]
  2. ROTIGOTINE (ROTIGOTINE) [Suspect]
     Indication: PARKINSON'S DISEASE
     Dosage: (4.5 MG-36.0 MG TRANSDERMAL)
     Route: 062
     Dates: start: 20100817
  3. SELEGILINE HYDROCHLORIDE [Concomitant]
  4. BENSERAZIDE HYDROCHLORIDE W/LEVODOPA [Concomitant]
  5. GLIBENCLAMIDE [Concomitant]

REACTIONS (1)
  - SUBDURAL HAEMATOMA [None]
